FAERS Safety Report 9279572 (Version 4)
Quarter: 2015Q1

REPORT INFORMATION
  Report Type: Spontaneous
  Country: US (occurrence: US)
  Receive Date: 20130509
  Receipt Date: 20150123
  Transmission Date: 20150721
  Serious: Yes (Hospitalization, Other)
  Sender: FDA-Public Use
  Company Number: US-009507513-1305USA000397

PATIENT
  Sex: Male
  Weight: 99.77 kg

DRUGS (2)
  1. PROPECIA [Suspect]
     Active Substance: FINASTERIDE
     Indication: ALOPECIA
     Dosage: 1 MG, QD
     Route: 048
     Dates: start: 20010302, end: 20040723
  2. PROPECIA [Suspect]
     Active Substance: FINASTERIDE
     Dosage: 1 MG, QD
     Route: 048
     Dates: start: 20040904, end: 20041216

REACTIONS (19)
  - Pollakiuria [Unknown]
  - Acquired diaphragmatic eventration [Unknown]
  - Libido decreased [Unknown]
  - Colostomy [Unknown]
  - Pelvic abscess [Unknown]
  - Drug ineffective [Unknown]
  - Diverticulitis [Unknown]
  - Constipation [Unknown]
  - Diverticulitis [Recovering/Resolving]
  - Prostatic calcification [Unknown]
  - Sexual dysfunction [Not Recovered/Not Resolved]
  - Proctocolectomy [Unknown]
  - Sleep disorder [Unknown]
  - Lymphadenopathy [Unknown]
  - Hepatic lesion [Unknown]
  - Pulmonary mass [Unknown]
  - Diverticulum intestinal [Unknown]
  - Diverticular perforation [Unknown]
  - Organic erectile dysfunction [Not Recovered/Not Resolved]

NARRATIVE: CASE EVENT DATE: 2001
